FAERS Safety Report 7215310-2 (Version None)
Quarter: 2011Q1

REPORT INFORMATION
  Report Type: 
  Country: None (occurrence: None)
  Receive Date: 20110107
  Receipt Date: 20101220
  Transmission Date: 20110831
  Serious: No
  Sender: FDA-Public Use
  Company Number: B0690759A

PATIENT
  Sex: Female

DRUGS (1)
  1. RELENZA [Suspect]
     Route: 055
     Dates: start: 20101024, end: 20101024

REACTIONS (1)
  - DRUG EXPOSURE DURING PREGNANCY [None]
